FAERS Safety Report 5764268-1 (Version None)
Quarter: 2008Q2

REPORT INFORMATION
  Report Type: 
  Country: None (occurrence: None)
  Receive Date: 20080605
  Receipt Date: 20080521
  Transmission Date: 20081010
  Serious: Yes (Hospitalization)
  Sender: FDA-Public Use
  Company Number: 2008S1000183

PATIENT
  Age: 72 Year
  Sex: Female
  Weight: 63.5 kg

DRUGS (6)
  1. CUBICIN [Suspect]
     Indication: ENTEROCOCCAL INFECTION
     Dosage: 6 MG/KG;Q24H;IV
     Route: 042
     Dates: start: 20080416, end: 20080521
  2. CUBICIN [Suspect]
     Indication: WOUND INFECTION
     Dosage: 6 MG/KG;Q24H;IV
     Route: 042
     Dates: start: 20080416, end: 20080521
  3. PANTOPRAZOLE SODIUM [Concomitant]
  4. XANAX [Concomitant]
  5. AMBIEN [Concomitant]
  6. INVANZ [Concomitant]

REACTIONS (4)
  - CONVULSION [None]
  - HAEMORRHAGE [None]
  - HERNIA [None]
  - HYPOMAGNESAEMIA [None]
